FAERS Safety Report 10196792 (Version 1)
Quarter: 2014Q2

REPORT INFORMATION
  Report Type: Spontaneous
  Country: TH (occurrence: None)
  Receive Date: 20140522
  Receipt Date: 20140522
  Transmission Date: 20141212
  Serious: Yes (Other)
  Sender: FDA-Public Use
  Company Number: FK201401760

PATIENT
  Sex: Female

DRUGS (2)
  1. INDOMETHACIN [Suspect]
     Indication: FOETAL EXPOSURE DURING PREGNANCY
     Route: 050
  2. NIFEDIPINE (NIFEDIPINE) (NIFEDIPINE) [Concomitant]

REACTIONS (7)
  - Foetal exposure during pregnancy [None]
  - Hydrops foetalis [None]
  - Cardiac failure [None]
  - Haemodynamic instability [None]
  - Ascites [None]
  - Pleural effusion [None]
  - Oedema [None]
